FAERS Safety Report 4466184-4 (Version None)
Quarter: 2004Q3

REPORT INFORMATION
  Report Type: 
  Country: None (occurrence: None)
  Receive Date: 20040930
  Receipt Date: 20040922
  Transmission Date: 20050211
  Serious: No
  Sender: FDA-Public Use
  Company Number: FR-2004-029747

PATIENT
  Age: 1 Day
  Sex: Male
  Weight: 0.7 kg

DRUGS (2)
  1. MIRENA [Suspect]
     Indication: CONTRACEPTION
     Dosage: 20 UG, CONT, TRANSPLACENTAL
     Route: 064
     Dates: start: 20031126, end: 20040702
  2. LEVONORGESTREL [Suspect]
     Indication: ORAL CONTRACEPTION
     Dosage: 1TAB (S), 1X/DAY, TRANSPLACENTAL
     Route: 064
     Dates: start: 20031101, end: 20031101

REACTIONS (12)
  - ANTEPARTUM HAEMORRHAGE [None]
  - DRUG EXPOSURE DURING PREGNANCY [None]
  - FOETAL GROWTH RETARDATION [None]
  - INJURY [None]
  - METRORRHAGIA [None]
  - PLACENTAL DISORDER [None]
  - PLACENTAL INSUFFICIENCY [None]
  - POLYMENORRHOEA [None]
  - PREGNANCY WITH CONTRACEPTIVE DEVICE [None]
  - PREMATURE BABY [None]
  - TREATMENT NONCOMPLIANCE [None]
  - UNINTENDED PREGNANCY [None]
